FAERS Safety Report 14010932 (Version 2)
Quarter: 2017Q4

REPORT INFORMATION
  Report Type: Spontaneous
  Country: US (occurrence: US)
  Receive Date: 20170926
  Receipt Date: 20171213
  Transmission Date: 20180321
  Serious: No
  Sender: FDA-Public Use
  Company Number: US-PFIZER INC-2017411288

PATIENT
  Age: 38 Year
  Sex: Male

DRUGS (1)
  1. ADVIL [Suspect]
     Active Substance: IBUPROFEN
     Dosage: UNK

REACTIONS (4)
  - Intentional product misuse [Unknown]
  - Oral discomfort [Unknown]
  - Product taste abnormal [Unknown]
  - Suspected counterfeit product [Unknown]
